FAERS Safety Report 5101373-7 (Version None)
Quarter: 2006Q3

REPORT INFORMATION
  Report Type: 
  Country: None (occurrence: None)
  Receive Date: 20060911
  Receipt Date: 20060901
  Transmission Date: 20061208
  Serious: Yes (Other)
  Sender: FDA-Public Use
  Company Number: US-ROCHE-462038

PATIENT
  Sex: Male

DRUGS (5)
  1. PEGASYS [Suspect]
     Dosage: STRENGTH REPORTED AS 180 MCG/0.5CC
     Route: 058
     Dates: start: 20060817
  2. COPEGUS [Suspect]
     Route: 048
     Dates: start: 20060817
  3. NORVASC [Concomitant]
  4. BENICAR [Concomitant]
  5. GLUCOPHAGE [Concomitant]

REACTIONS (2)
  - BLOOD URIC ACID INCREASED [None]
  - THERAPY NON-RESPONDER [None]
